FAERS Safety Report 4657327-8 (Version None)
Quarter: 2005Q2

REPORT INFORMATION
  Report Type: 
  Country: None (occurrence: None)
  Receive Date: 20050408
  Receipt Date: 20041209
  Transmission Date: 20051028
  Serious: No
  Sender: FDA-Public Use
  Company Number: 235979K04USA

PATIENT
  Age: 50 Year
  Sex: Female

DRUGS (1)
  1. REBIF [Suspect]
     Indication: MULTIPLE SCLEROSIS
     Dates: start: 20040101

REACTIONS (5)
  - CHEST PAIN [None]
  - DYSKINESIA [None]
  - FEELING ABNORMAL [None]
  - SKIN NODULE [None]
  - WHITE BLOOD CELL COUNT INCREASED [None]
